FAERS Safety Report 10066212 (Version 1)
Quarter: 2014Q2

REPORT INFORMATION
  Report Type: Spontaneous
  Country: IT (occurrence: IT)
  Receive Date: 20140408
  Receipt Date: 20140408
  Transmission Date: 20141212
  Serious: Yes (Other)
  Sender: FDA-Public Use
  Company Number: IT-WATSON-2014-06731

PATIENT
  Age: 40 Year
  Sex: Female

DRUGS (3)
  1. CARBOPLATIN [Suspect]
     Indication: OVARIAN CANCER
     Dosage: 363.9 MG, CYCLICAL
     Route: 042
     Dates: start: 20140109, end: 20140313
  2. CARBOPLATIN [Suspect]
     Dosage: 363.9 MG, CYCLICAL
     Route: 042
     Dates: start: 20140109, end: 20140313
  3. GEMCITABINE HYDROCHLORIDE [Concomitant]
     Indication: OVARIAN CANCER
     Dosage: 1240 MG, UNK
     Route: 042
     Dates: start: 20140109

REACTIONS (3)
  - Throat tightness [Recovered/Resolved]
  - Periorbital oedema [Recovered/Resolved]
  - Pruritus [Recovered/Resolved]
